FAERS Safety Report 9049203 (Version 1)
Quarter: 2013Q1

REPORT INFORMATION
  Report Type: Spontaneous
  Country: US (occurrence: None)
  Receive Date: 20130130
  Receipt Date: 20130130
  Transmission Date: 20140127
  Serious: No
  Sender: FDA-Public Use
  Company Number: None

PATIENT
  Age: 76 Year
  Sex: Female
  Weight: 81.65 kg

DRUGS (1)
  1. LATANOPROST 0.005 % OPHTHALMIC SOLUTION [Suspect]
     Indication: ABNORMAL SENSATION IN EYE
     Dosage: 1 DROP IN EACH EYE 1 TIME AT NITE EYE ?TIMOLOL MALEATE 2TIME A DAY EYE
     Dates: start: 2011, end: 20111101

REACTIONS (3)
  - Instillation site pruritus [None]
  - Instillation site pain [None]
  - Product substitution issue [None]
